FAERS Safety Report 6934422-1 (Version None)
Quarter: 2010Q3

REPORT INFORMATION
  Report Type: 
  Country: None (occurrence: None)
  Receive Date: 20100820
  Receipt Date: 20100810
  Transmission Date: 20110219
  Serious: Yes (Hospitalization)
  Sender: FDA-Public Use
  Company Number: B0662685A

PATIENT
  Age: 50 Year
  Sex: Female

DRUGS (3)
  1. PANDEMRIX H1N1 [Suspect]
     Indication: PROPHYLAXIS
     Route: 065
     Dates: start: 20091209, end: 20091209
  2. AMOXICILLIN AND CLAVULANATE POTASSIUM [Suspect]
     Route: 065
     Dates: start: 20100212
  3. DICLOFENAC SODIUM [Suspect]
     Route: 065
     Dates: start: 20100212

REACTIONS (2)
  - DRUG HYPERSENSITIVITY [None]
  - PREDISPOSITION TO DISEASE [None]
